FAERS Safety Report 4318726-7 (Version None)
Quarter: 2004Q1

REPORT INFORMATION
  Report Type: 
  Country: None (occurrence: None)
  Receive Date: 20040317
  Receipt Date: 20040317
  Transmission Date: 20041129
  Serious: Yes (Other)
  Sender: FDA-Public Use
  Company Number: None

PATIENT
  Age: 66 Year
  Sex: Male
  Weight: 63.5036 kg

DRUGS (5)
  1. AFEDITAB CR 60 MG (EXTENDED RELEASE) NDC 00591-3194-01 (WATSON) [Suspect]
     Indication: HYPERTENSION
     Dosage: ORALLY ONCE DAILY
     Dates: start: 20040106, end: 20040211
  2. AFEDITAB CR 60 MG (EXTENDED RELEASE) NDC 00591-3194-01 (WATSON) [Suspect]
     Indication: HYPERTENSION
     Dosage: ORALLY ONCE DAILY
     Dates: start: 20031119
  3. VICODIN [Concomitant]
  4. PROTONIX [Concomitant]
  5. PROZAC [Concomitant]

REACTIONS (4)
  - ASTHENIA [None]
  - DIZZINESS [None]
  - TREMOR [None]
  - VERTIGO [None]
